FAERS Safety Report 13067635 (Version 4)
Quarter: 2017Q1

REPORT INFORMATION
  Report Type: Spontaneous
  Country: TW (occurrence: TW)
  Receive Date: 20161228
  Receipt Date: 20170120
  Transmission Date: 20170428
  Serious: Yes (Hospitalization)
  Sender: FDA-Public Use
  Company Number: TW-CIPLA LTD.-2016TW23802

PATIENT

DRUGS (12)
  1. LITHIUM. [Interacting]
     Active Substance: LITHIUM
     Dosage: 600 MG/DAY, RE-ADMINISTERED ON DAY 32
     Route: 065
  2. RISPERIDONE. [Interacting]
     Active Substance: RISPERIDONE
     Dosage: 4.5 MG/DAY
     Route: 065
     Dates: start: 20131213
  3. LITHIUM. [Interacting]
     Active Substance: LITHIUM
     Indication: SCHIZOAFFECTIVE DISORDER
     Dosage: 600 MG/DAY TO 1200 MG/DAY, FROM AGE 30 TO 51
     Route: 048
     Dates: start: 1990
  4. LITHIUM. [Interacting]
     Active Substance: LITHIUM
     Dosage: 600 MG/DAY
     Route: 065
  5. LITHIUM. [Interacting]
     Active Substance: LITHIUM
     Dosage: 900 MG/DAY
     Route: 065
  6. OLANZAPINE. [Suspect]
     Active Substance: OLANZAPINE
     Indication: SCHIZOAFFECTIVE DISORDER
     Dosage: 5 TO 15 MG/DAY
     Route: 048
     Dates: start: 20110201, end: 20131212
  7. RISPERIDONE. [Interacting]
     Active Substance: RISPERIDONE
     Indication: SCHIZOAFFECTIVE DISORDER
     Dosage: 25 MG/VIAL ON DAY 15
     Route: 030
     Dates: start: 20131204
  8. OLANZAPINE. [Suspect]
     Active Substance: OLANZAPINE
     Dosage: 10 MG/DAY
     Route: 065
  9. OLANZAPINE. [Suspect]
     Active Substance: OLANZAPINE
     Dosage: 20 MG/DAY
     Route: 065
  10. RISPERIDONE. [Interacting]
     Active Substance: RISPERIDONE
     Dosage: 3 MG/DAY, RE-ADMINISTERED
     Route: 048
     Dates: start: 20131211
  11. VALPROIC ACID. [Suspect]
     Active Substance: VALPROIC ACID
     Indication: BIPOLAR I DISORDER
     Dosage: UNK
     Route: 065
  12. LITHIUM. [Interacting]
     Active Substance: LITHIUM
     Dosage: UNK
     Route: 065

REACTIONS (7)
  - Diabetes mellitus inadequate control [Unknown]
  - Acute kidney injury [Recovered/Resolved]
  - Schizoaffective disorder [Unknown]
  - Treatment noncompliance [Unknown]
  - Neurotoxicity [Recovered/Resolved]
  - Toxicity to various agents [Unknown]
  - Drug interaction [Unknown]

NARRATIVE: CASE EVENT DATE: 20131216
